FAERS Safety Report 9291601 (Version 1)
Quarter: 2013Q2

REPORT INFORMATION
  Report Type: Report from Study
  Country: KR (occurrence: KR)
  Receive Date: 20130515
  Receipt Date: 20130515
  Transmission Date: 20140414
  Serious: Yes (Hospitalization)
  Sender: FDA-Public Use
  Company Number: KR-GLAXOSMITHKLINE-B0891640A

PATIENT
  Age: 46 Year
  Sex: Female
  Weight: 61 kg

DRUGS (3)
  1. TYKERB [Suspect]
     Indication: BREAST CANCER
     Dosage: 1250MG PER DAY
     Route: 048
     Dates: start: 20100518, end: 20100920
  2. XELODA [Suspect]
     Indication: BREAST CANCER
     Dosage: 1000MG TWICE PER DAY
     Route: 048
     Dates: start: 20100518, end: 20100920
  3. MYROL [Concomitant]
     Indication: PAIN
     Dosage: 1CAP THREE TIMES PER DAY
     Route: 048
     Dates: start: 20100513, end: 20100705

REACTIONS (1)
  - Pneumonia [Recovered/Resolved]
